FAERS Safety Report 11665463 (Version 3)
Quarter: 2016Q3

REPORT INFORMATION
  Report Type: Spontaneous
  Country: DE (occurrence: DE)
  Receive Date: 20151027
  Receipt Date: 20160704
  Transmission Date: 20161109
  Serious: Yes (Hospitalization, Other)
  Sender: FDA-Public Use
  Company Number: DE-PFIZER INC-2015349224

PATIENT
  Age: 71 Year
  Sex: Female
  Weight: 62 kg

DRUGS (3)
  1. XALKORI [Suspect]
     Active Substance: CRIZOTINIB
     Indication: NON-SMALL CELL LUNG CANCER
     Dosage: 250 MG, 2X/DAY
     Route: 048
     Dates: start: 20150801
  2. XALKORI [Suspect]
     Active Substance: CRIZOTINIB
     Dosage: 250 MG, EVERY THREE DAYS IN EVENING
     Route: 048
  3. XALKORI [Suspect]
     Active Substance: CRIZOTINIB
     Dosage: 200 MG, 2X/DAY
     Route: 048

REACTIONS (18)
  - Bradyphrenia [Recovered/Resolved]
  - Bradycardia [Recovering/Resolving]
  - Product use issue [Unknown]
  - Fatigue [Recovering/Resolving]
  - Dysgeusia [Recovering/Resolving]
  - Photopsia [Recovering/Resolving]
  - Speech disorder [Recovering/Resolving]
  - Dysstasia [Recovered/Resolved]
  - Chills [Recovered/Resolved]
  - Stupor [Recovering/Resolving]
  - Arrhythmia [Recovering/Resolving]
  - Tremor [Recovered/Resolved]
  - Dysgraphia [Recovered/Resolved]
  - Vision blurred [Recovering/Resolving]
  - Decreased appetite [Recovering/Resolving]
  - Ataxia [Recovered/Resolved]
  - Muscular weakness [Recovering/Resolving]
  - Gait disturbance [Recovered/Resolved]

NARRATIVE: CASE EVENT DATE: 2015
